FAERS Safety Report 11090718 (Version 1)
Quarter: 2015Q2

REPORT INFORMATION
  Report Type: Spontaneous
  Country: US (occurrence: None)
  Receive Date: 20150504
  Receipt Date: 20150504
  Transmission Date: 20150821
  Serious: Yes (Hospitalization)
  Sender: FDA-Public Use
  Company Number: None

PATIENT
  Age: 66 Year
  Sex: Female

DRUGS (1)
  1. OTEZLA [Suspect]
     Active Substance: APREMILAST
     Dosage: PERMANENTLY DISCONTINUED
     Dates: start: 20141007, end: 20150501

REACTIONS (4)
  - Upper respiratory tract infection [None]
  - Pneumonia [None]
  - Sinusitis [None]
  - Bronchitis [None]

NARRATIVE: CASE EVENT DATE: 20141201
